FAERS Safety Report 25627444 (Version 1)
Quarter: 2025Q3

REPORT INFORMATION
  Report Type: Spontaneous
  Country: US (occurrence: None)
  Receive Date: 20250730
  Receipt Date: 20250730
  Transmission Date: 20251021
  Serious: No
  Sender: FDA-CTU
  Company Number: None

PATIENT
  Age: 37 Year
  Sex: Female

DRUGS (5)
  1. ZURZUVAE [Suspect]
     Active Substance: ZURANOLONE
     Indication: Perinatal depression
     Dosage: 50 MG AT BEDTIME ORAL
     Route: 048
  2. BUSPAR [Concomitant]
     Active Substance: BUSPIRONE HYDROCHLORIDE
  3. APAP PRN [Concomitant]
  4. Gabapentin PRN [Concomitant]
  5. Senna PRN [Concomitant]

REACTIONS (3)
  - Fine motor skill dysfunction [None]
  - Dysgraphia [None]
  - Musculoskeletal stiffness [None]

NARRATIVE: CASE EVENT DATE: 20250608
